FAERS Safety Report 7342078-1 (Version None)
Quarter: 2011Q1

REPORT INFORMATION
  Report Type: 
  Country: None (occurrence: None)
  Receive Date: 20110309
  Receipt Date: 20110304
  Transmission Date: 20110831
  Serious: Yes (Death, Hospitalization)
  Sender: FDA-Public Use
  Company Number: US-AMGEN-USASP2011012634

PATIENT
  Age: 80 Year
  Sex: Male

DRUGS (1)
  1. NEULASTA [Suspect]
     Indication: NEUTROPENIA

REACTIONS (2)
  - WHITE BLOOD CELL COUNT INCREASED [None]
  - ACUTE RESPIRATORY DISTRESS SYNDROME [None]
